FAERS Safety Report 18877462 (Version 1)
Quarter: 2021Q1

REPORT INFORMATION
  Report Type: Spontaneous
  Country: JP (occurrence: JP)
  Receive Date: 20210211
  Receipt Date: 20210211
  Transmission Date: 20210420
  Serious: Yes (Other)
  Sender: FDA-Public Use
  Company Number: JP-AXELLIA-003672

PATIENT
  Age: 77 Year
  Sex: Female

DRUGS (2)
  1. FAVIPIRAVIR [Concomitant]
     Active Substance: FAVIPIRAVIR
     Indication: COVID-19
  2. VANCOMYCIN [Suspect]
     Active Substance: VANCOMYCIN
     Indication: INFECTION
     Dosage: LOADING DOSE OF 2 G AND MAINTENANCE DOSE OF 1 G TWICE A DAY

REACTIONS (1)
  - Renal tubular necrosis [Recovering/Resolving]
